FAERS Safety Report 8255150-9 (Version None)
Quarter: 2012Q2

REPORT INFORMATION
  Report Type: 
  Country: None (occurrence: None)
  Receive Date: 20120403
  Receipt Date: 20120327
  Transmission Date: 20120825
  Serious: Yes (Other)
  Sender: FDA-Public Use
  Company Number: US-CELGENEUS-163-20785-12033254

PATIENT
  Sex: Male
  Weight: 87.622 kg

DRUGS (5)
  1. CALCIUM + VITAMIN D [Concomitant]
     Indication: SUPPLEMENTATION THERAPY
     Dosage: 1
     Route: 065
  2. FOLIC ACID [Concomitant]
     Indication: SUPPLEMENTATION THERAPY
     Dosage: 1 MILLIGRAM
     Route: 065
  3. VITAMIN B-12 [Concomitant]
     Indication: SUPPLEMENTATION THERAPY
     Route: 065
  4. THALOMID [Suspect]
     Indication: MULTIPLE MYELOMA
     Dosage: 400 MILLIGRAM
     Route: 048
     Dates: start: 20040212, end: 20050823
  5. ASPIRIN [Concomitant]
     Indication: SUPPLEMENTATION THERAPY
     Dosage: 81 MILLIGRAM
     Route: 065

REACTIONS (7)
  - PHOTOPSIA [None]
  - RASH GENERALISED [None]
  - BLOOD CREATININE INCREASED [None]
  - NEUROPATHY PERIPHERAL [None]
  - VISUAL FIELD DEFECT [None]
  - DIARRHOEA [None]
  - CONSTIPATION [None]
